FAERS Safety Report 11773501 (Version 3)
Quarter: 2016Q1

REPORT INFORMATION
  Report Type: Spontaneous
  Country: US (occurrence: US)
  Receive Date: 20151124
  Receipt Date: 20160209
  Transmission Date: 20160525
  Serious: Yes (Hospitalization, Other)
  Sender: FDA-Public Use
  Company Number: US-SA-2015SA190502

PATIENT
  Age: 62 Year
  Sex: Female

DRUGS (3)
  1. FENOFIBRATE. [Concomitant]
     Active Substance: FENOFIBRATE
  2. AUBAGIO [Suspect]
     Active Substance: TERIFLUNOMIDE
     Indication: MULTIPLE SCLEROSIS
     Route: 048
  3. OSPHENA [Concomitant]
     Active Substance: OSPEMIFENE

REACTIONS (11)
  - Staphylococcal infection [Unknown]
  - Thrombosis [Unknown]
  - Myalgia [Unknown]
  - Swelling [Unknown]
  - Hypoaesthesia [Unknown]
  - Depressed mood [Unknown]
  - Spinal operation [Unknown]
  - Asthenia [Unknown]
  - Cerebrospinal fluid leakage [Unknown]
  - Abasia [Unknown]
  - Cystitis [Unknown]

NARRATIVE: CASE EVENT DATE: 20151119
